FAERS Safety Report 5905651-0 (Version None)
Quarter: 2008Q4

REPORT INFORMATION
  Report Type: 
  Country: None (occurrence: None)
  Receive Date: 20081002
  Receipt Date: 20080925
  Transmission Date: 20090506
  Serious: Yes (Hospitalization)
  Sender: FDA-Public Use
  Company Number: US-BRISTOL-MYERS SQUIBB COMPANY-14348106

PATIENT
  Age: 56 Year
  Sex: Male
  Weight: 71 kg

DRUGS (3)
  1. ERBITUX [Suspect]
     Indication: LARYNGEAL CANCER
     Dosage: START DATE OF 1ST COURSE: 11AUG08 START DATE OF 2ND COURSE: 12SEP08
     Dates: start: 20080908, end: 20080908
  2. CISPLATIN [Suspect]
     Indication: LARYNGEAL CANCER
     Dosage: START DATE OF 1ST COURSE: 11AUG08 START DATE OF 2ND COURSE: 12SEP08
     Dates: start: 20080908, end: 20080908
  3. RADIATION THERAPY [Suspect]
     Indication: LARYNGEAL CANCER
     Dosage: DOSAGE FORM = GY.  INTERRUPTED UPON HOSPITALIZATION, SCHEDULED TO RESUME ON 29-SEP-2008.
     Dates: start: 20080912, end: 20080912

REACTIONS (2)
  - DEHYDRATION [None]
  - OESOPHAGITIS [None]
